FAERS Safety Report 20826064 (Version 1)
Quarter: 2022Q2

REPORT INFORMATION
  Report Type: Spontaneous
  Country: AU (occurrence: AU)
  Receive Date: 20220513
  Receipt Date: 20220513
  Transmission Date: 20220720
  Serious: Yes (Hospitalization, Other)
  Sender: FDA-Public Use
  Company Number: AU-ABBVIE-21K-008-3953482-00

PATIENT
  Sex: Male

DRUGS (4)
  1. VALPROATE SODIUM [Suspect]
     Active Substance: VALPROATE SODIUM
     Indication: Schizophrenia
     Dosage: 2 IN MORNING, 2 AT NIGHT
     Route: 065
     Dates: start: 2007
  2. VALPROATE SODIUM [Suspect]
     Active Substance: VALPROATE SODIUM
     Indication: Schizophrenia
     Route: 065
     Dates: start: 2014, end: 2017
  3. ZUCLOPENTHIXOL ACETATE [Suspect]
     Active Substance: ZUCLOPENTHIXOL ACETATE
     Indication: Mental disorder
     Dosage: IN MORNING , AT NIGHT
     Route: 065
  4. VALPROATE SODIUM [Suspect]
     Active Substance: VALPROATE SODIUM
     Indication: Schizophrenia
     Dosage: 2 IN THE MORNING AND 2 AT NIGHT
     Route: 065
     Dates: start: 2007

REACTIONS (20)
  - Mental disorder [Unknown]
  - Oral pain [Not Recovered/Not Resolved]
  - Pruritus [Unknown]
  - Syncope [Unknown]
  - Anxiety [Unknown]
  - Dysuria [Unknown]
  - Hypervolaemia [Unknown]
  - Genital infection male [Unknown]
  - Blood urine present [Unknown]
  - Urine output increased [Unknown]
  - Mouth haemorrhage [Unknown]
  - Circulatory collapse [Recovered/Resolved with Sequelae]
  - Enuresis [Unknown]
  - Rash [Unknown]
  - Confusional state [Unknown]
  - General physical health deterioration [Unknown]
  - Product quality issue [Unknown]
  - Product packaging issue [Unknown]
  - Product packaging issue [Unknown]
  - Dyspepsia [Unknown]

NARRATIVE: CASE EVENT DATE: 20160101
